FAERS Safety Report 18291522 (Version 1)
Quarter: 2020Q3

REPORT INFORMATION
  Report Type: Spontaneous
  Country: GB (occurrence: GB)
  Receive Date: 20200921
  Receipt Date: 20200921
  Transmission Date: 20201103
  Serious: Yes (Other)
  Sender: FDA-Public Use
  Company Number: GB-ASCEND THERAPEUTICS US, LLC-2090990

PATIENT
  Age: 59 Year
  Sex: Female
  Weight: 54 kg

DRUGS (4)
  1. OESTRODOSE (ESTRADIOL) [Suspect]
     Active Substance: ESTRADIOL
     Route: 062
     Dates: start: 20200823
  2. ESTROGEL [Suspect]
     Active Substance: ESTRADIOL
     Indication: HORMONE REPLACEMENT THERAPY
     Route: 062
     Dates: start: 20200823
  3. ESTROGEL [Suspect]
     Active Substance: ESTRADIOL
  4. OESTROGEL (ESTRADIOL), UNKNOWN [Suspect]
     Active Substance: ESTRADIOL

REACTIONS (8)
  - Insomnia [Recovering/Resolving]
  - Menopausal symptoms [Recovering/Resolving]
  - Paranoia [Recovering/Resolving]
  - Hot flush [Recovering/Resolving]
  - Product physical consistency issue [Unknown]
  - Product substitution issue [Unknown]
  - Anxiety [Recovering/Resolving]
  - Condition aggravated [Recovering/Resolving]

NARRATIVE: CASE EVENT DATE: 20200823
